FAERS Safety Report 8352138-4 (Version None)
Quarter: 2012Q2

REPORT INFORMATION
  Report Type: 
  Country: None (occurrence: None)
  Receive Date: 20120511
  Receipt Date: 20120502
  Transmission Date: 20120825
  Serious: Yes (Other)
  Sender: FDA-Public Use
  Company Number: CA-JNJFOC-20120407947

PATIENT
  Sex: Female
  Weight: 48.5 kg

DRUGS (16)
  1. SYNTHROID [Concomitant]
     Route: 065
  2. CONJUGATED ESTROGEN [Concomitant]
     Dosage: .625 (UNITS UNSPECIFIED)
     Route: 065
  3. NOVO-MEDRONE [Concomitant]
     Route: 065
  4. REMICADE [Suspect]
     Indication: CROHN'S DISEASE
     Route: 042
     Dates: start: 20110511
  5. VITAMIN B-12 [Concomitant]
     Route: 065
  6. CALCIUM [Concomitant]
     Route: 065
  7. CORTIFOAM [Concomitant]
     Route: 065
  8. CARBAMAZEPINE [Concomitant]
     Route: 065
  9. VITALUX NOS [Concomitant]
     Dosage: 1/2 X 2
     Route: 065
  10. MULTI-VITAMINS [Concomitant]
     Dosage: 1/2 @ 2
     Route: 065
  11. TOCOPHEROL CONCENTRATE CAP [Concomitant]
     Dosage: DOSE: 400 (UNITS UNSPECIFIED)
     Route: 065
  12. TYLENOL W/ CODEINE NO. 3 [Concomitant]
     Route: 065
  13. RANITIDINE [Concomitant]
     Route: 065
  14. FORTEO [Concomitant]
     Route: 065
  15. IRON [Concomitant]
     Route: 042
  16. VITAMIN D [Concomitant]
     Route: 065
     Dates: start: 20110301

REACTIONS (2)
  - NEPHROLITHIASIS [None]
  - RENAL DISORDER [None]
